FAERS Safety Report 21439735 (Version 1)
Quarter: 2022Q4

REPORT INFORMATION
  Report Type: Spontaneous
  Country: DE (occurrence: DE)
  Receive Date: 20221011
  Receipt Date: 20221011
  Transmission Date: 20230112
  Serious: Yes (Other)
  Sender: FDA-Public Use
  Company Number: DE-Accord-273657

PATIENT
  Sex: Female

DRUGS (8)
  1. HYDROCHLOROTHIAZIDE [Suspect]
     Active Substance: HYDROCHLOROTHIAZIDE
     Indication: Product used for unknown indication
     Dosage: QD (STRENGTH: 12.5MG, 1 PER DAY)
     Route: 048
     Dates: start: 2020
  2. IMATINIB [Suspect]
     Active Substance: IMATINIB
     Indication: Product used for unknown indication
     Dosage: STRENGTH: 400MG, 1 TABLET
     Route: 048
     Dates: start: 2020
  3. BRIMONIDINE [Concomitant]
     Active Substance: BRIMONIDINE TARTRATE
     Dosage: STRENGTH: 2 MG/ML
     Route: 065
  4. BIOTIN [Concomitant]
     Active Substance: BIOTIN
     Dosage: QD (STRENGTH: 5MG, 1X PER DAY)
     Route: 048
  5. Calcigen [Concomitant]
     Dosage: STRENGTH: 600 MG/400
     Route: 048
  6. TIMOLOL [Concomitant]
     Active Substance: TIMOLOL
     Dosage: QD (STRENGTH: 0.25 %, 1X PER DAY)
     Route: 065
  7. TAFLUPROST [Concomitant]
     Active Substance: TAFLUPROST
     Dosage: QD (1X PER DAY)
     Route: 065
  8. MAGNESIUM [Concomitant]
     Active Substance: MAGNESIUM
     Dosage: QD (2X PER DAY)
     Route: 048

REACTIONS (1)
  - Eye haemorrhage [Not Recovered/Not Resolved]
